FAERS Safety Report 12867261 (Version 1)
Quarter: 2016Q4

REPORT INFORMATION
  Report Type: Other
  Country: None (occurrence: US)
  Receive Date: 20161020
  Receipt Date: 20161020
  Transmission Date: 20170207
  Serious: Yes (Life-Threatening, Hospitalization)
  Sender: FDA-Public Use
  Company Number: US-GUTHY-RENKER LLC-1058578

PATIENT
  Age: 59 Year
  Sex: Female

DRUGS (1)
  1. MEANINGFUL BEAUTY CINDY CRAWFORD ANTIOXIDANT SPF 20 UVA/UVB [Suspect]
     Active Substance: AVOBENZONE\OCTINOXATE\OCTISALATE\OXYBENZONE
     Indication: PHOTOSENSITIVITY REACTION
     Route: 061
     Dates: start: 20160515, end: 20160522

REACTIONS (4)
  - Dyspnoea [None]
  - Swelling face [None]
  - Photopsia [None]
  - Contusion [Recovered/Resolved]

NARRATIVE: CASE EVENT DATE: 20160522
